FAERS Safety Report 7923061-1 (Version None)
Quarter: 2011Q4

REPORT INFORMATION
  Report Type: 
  Country: None (occurrence: None)
  Receive Date: 20111117
  Receipt Date: 20110127
  Transmission Date: 20120403
  Serious: No
  Sender: FDA-Public Use
  Company Number: US-AMGEN-USASP2011005274

PATIENT
  Age: 49 Year
  Sex: Female
  Weight: 60.771 kg

DRUGS (9)
  1. METHOTREXATE [Concomitant]
     Dosage: 2.5 MG, UNK
  2. VITAMIN D [Concomitant]
     Dosage: 400 IU, UNK
  3. ENBREL [Suspect]
     Indication: PRODUCT USED FOR UNKNOWN INDICATION
     Dosage: 50 MG, QWK
     Route: 058
  4. AMLODIPINE [Concomitant]
     Dosage: 2.5 MG, UNK
  5. ULTRAVATE                          /00008504/ [Concomitant]
     Dosage: 0.05 %, UNK
     Route: 061
  6. TRAMADOL HCL [Concomitant]
     Dosage: 50 MG, UNK
  7. ALENDRONATE SODIUM [Concomitant]
     Dosage: 10 MG, UNK
  8. FOLIC ACID [Concomitant]
     Dosage: 1 MG, UNK
  9. PREDNISONE TAB [Concomitant]
     Dosage: 5 MG, UNK

REACTIONS (3)
  - INJECTION SITE SWELLING [None]
  - ANAEMIA [None]
  - INJECTION SITE PRURITUS [None]
